FAERS Safety Report 17944546 (Version 1)
Quarter: 2020Q2

REPORT INFORMATION
  Report Type: Spontaneous
  Country: US (occurrence: US)
  Receive Date: 20200625
  Receipt Date: 20200625
  Transmission Date: 20200714
  Serious: Yes (Hospitalization)
  Sender: FDA-Public Use
  Company Number: US-MYLANLABS-2020M1058477

PATIENT
  Age: 69 Year
  Sex: Female

DRUGS (9)
  1. HEPARIN [Suspect]
     Active Substance: HEPARIN SODIUM
     Dosage: 500 UNITS OF HEPARIN PER HOUR THROUGH THE SIDE ARM OF THE SHEATH.
  2. AMIODARONE [Concomitant]
     Active Substance: AMIODARONE
     Indication: PHAEOCHROMOCYTOMA
     Route: 065
  3. HEPARIN [Suspect]
     Active Substance: HEPARIN SODIUM
     Indication: EMBOLISM
     Dosage: BOLUS DOSE OF 5000 UNITS TOTAL
  4. PRAZOSIN. [Concomitant]
     Active Substance: PRAZOSIN
     Indication: PHAEOCHROMOCYTOMA
     Dosage: UNK
     Route: 065
  5. APIXABAN [Suspect]
     Active Substance: APIXABAN
     Indication: ANTICOAGULANT THERAPY
  6. METOPROLOL. [Concomitant]
     Active Substance: METOPROLOL
     Indication: PHAEOCHROMOCYTOMA
     Dosage: UNK
     Route: 065
  7. DOXAZOSIN [Concomitant]
     Active Substance: DOXAZOSIN MESYLATE
     Indication: PHAEOCHROMOCYTOMA
     Dosage: UNK
     Route: 065
  8. DILTIAZEM. [Concomitant]
     Active Substance: DILTIAZEM
     Indication: PHAEOCHROMOCYTOMA
     Dosage: UNK
     Route: 065
  9. APIXABAN [Suspect]
     Active Substance: APIXABAN
     Indication: PHAEOCHROMOCYTOMA
     Route: 065

REACTIONS (3)
  - Necrosis [Unknown]
  - Haematoma [Unknown]
  - Perinephritis [Unknown]
